FAERS Safety Report 5446594-9 (Version None)
Quarter: 2007Q3

REPORT INFORMATION
  Report Type: 
  Country: None (occurrence: None)
  Receive Date: 20070907
  Receipt Date: 20070827
  Transmission Date: 20080115
  Serious: Yes (Hospitalization)
  Sender: FDA-Public Use
  Company Number: JP-PFIZER INC-2007062641

PATIENT
  Sex: Male
  Weight: 51.2 kg

DRUGS (12)
  1. AZULFIDINE EN-TABS [Suspect]
     Indication: CAPLAN'S SYNDROME
     Route: 048
     Dates: start: 20070630, end: 20070725
  2. AZULFIDINE EN-TABS [Suspect]
     Indication: RHEUMATOID ARTHRITIS
  3. PREDONINE [Concomitant]
     Route: 048
  4. ACINON [Concomitant]
     Indication: GASTRIC ULCER
     Route: 048
  5. HYPEN [Concomitant]
     Route: 048
  6. ISCOTIN [Concomitant]
     Indication: PULMONARY TUBERCULOSIS
     Dosage: DAILY DOSE:300MG
     Route: 048
  7. PYDOXAL [Concomitant]
     Indication: VITAMIN B6 DEFICIENCY
     Dosage: DAILY DOSE:30MG
     Route: 048
  8. MAGNESIUM OXIDE [Concomitant]
     Indication: CONSTIPATION
     Route: 048
  9. VOLTAREN - SLOW RELEASE ^NOVARTIS^ [Concomitant]
     Route: 048
     Dates: start: 20070614, end: 20070628
  10. MEDICON [Concomitant]
     Indication: COUGH
     Route: 048
  11. ERYTHROCIN [Concomitant]
     Indication: PNEUMONIA
     Dosage: DAILY DOSE:1200MG
     Route: 048
     Dates: start: 20070630, end: 20070708
  12. MODACIN [Concomitant]
     Indication: PNEUMONIA
     Dosage: DAILY DOSE:2GRAM
     Route: 042
     Dates: start: 20070630, end: 20070707

REACTIONS (1)
  - AGRANULOCYTOSIS [None]
